FAERS Safety Report 12701852 (Version 1)
Quarter: 2016Q3

REPORT INFORMATION
  Report Type: Spontaneous
  Country: US (occurrence: None)
  Receive Date: 20160830
  Receipt Date: 20160830
  Transmission Date: 20161109
  Serious: Yes (Hospitalization)
  Sender: FDA-Public Use
  Company Number: None

PATIENT
  Age: 46 Year
  Sex: Male
  Weight: 65.35 kg

DRUGS (2)
  1. CISPLATIN. [Suspect]
     Active Substance: CISPLATIN
     Dates: end: 20160624
  2. 5-FLUOROURACIL (5-FU) [Suspect]
     Active Substance: FLUOROURACIL
     Dates: end: 20160628

REACTIONS (6)
  - Headache [None]
  - Staphylococcus test positive [None]
  - Candida test positive [None]
  - Klebsiella test positive [None]
  - Culture positive [None]
  - Ear pain [None]

NARRATIVE: CASE EVENT DATE: 20160825
